FAERS Safety Report 14174716 (Version 1)
Quarter: 2017Q4

REPORT INFORMATION
  Report Type: Spontaneous
  Country: US (occurrence: US)
  Receive Date: 20171109
  Receipt Date: 20171109
  Transmission Date: 20180321
  Serious: No
  Sender: FDA-Public Use
  Company Number: US-ALLERGAN-1709858US

PATIENT
  Sex: Female

DRUGS (5)
  1. XALATAN [Concomitant]
     Active Substance: LATANOPROST
     Indication: PRODUCT USED FOR UNKNOWN INDICATION
     Route: 047
  2. LOSARTAN. [Concomitant]
     Active Substance: LOSARTAN
     Indication: HYPERTENSION
     Route: 048
  3. VITAMINS AND MINERALS [Concomitant]
     Indication: SUPPLEMENTATION THERAPY
     Route: 048
  4. TOPROL XL [Concomitant]
     Active Substance: METOPROLOL SUCCINATE
     Indication: HYPERTENSION
     Route: 048
  5. ALPHAGAN P [Suspect]
     Active Substance: BRIMONIDINE TARTRATE
     Indication: GLAUCOMA
     Dosage: UNK, BID
     Route: 047
     Dates: start: 2007

REACTIONS (2)
  - Diplopia [Not Recovered/Not Resolved]
  - Visual field defect [Not Recovered/Not Resolved]
